FAERS Safety Report 10753930 (Version 1)
Quarter: 2015Q1

REPORT INFORMATION
  Report Type: Spontaneous
  Country: US (occurrence: None)
  Receive Date: 20150129
  Receipt Date: 20150129
  Transmission Date: 20150721
  Serious: Yes (Disabling, Other)
  Sender: FDA-Public Use
  Company Number: None

PATIENT
  Age: 28 Year
  Sex: Female
  Weight: 51.26 kg

DRUGS (1)
  1. SUBOXONE [Suspect]
     Active Substance: BUPRENORPHINE HYDROCHLORIDE\NALOXONE HYDROCHLORIDE
     Indication: DRUG DEPENDENCE
     Dosage: TAKEN UNDER THE TONGUE
     Route: 048
     Dates: end: 20150127

REACTIONS (6)
  - Quality of life decreased [None]
  - Depression [None]
  - Tooth loss [None]
  - Dental caries [None]
  - Social problem [None]
  - Psychiatric symptom [None]

NARRATIVE: CASE EVENT DATE: 20150128
